FAERS Safety Report 22659649 (Version 1)
Quarter: 2023Q2

REPORT INFORMATION
  Report Type: Spontaneous
  Country: US (occurrence: None)
  Receive Date: 20230630
  Receipt Date: 20230630
  Transmission Date: 20230721
  Serious: Yes (Hospitalization)
  Sender: FDA-Public Use
  Company Number: None

PATIENT
  Sex: Female

DRUGS (15)
  1. REBIF [Suspect]
     Active Substance: INTERFERON BETA-1A
     Indication: Multiple sclerosis
     Dosage: 44 MCG/0.5ML SUBCUTANEOUS??ADMINISTER 44 MCG SUBCUTANEOUSLY 3 TIMES PER WEEK?
     Dates: start: 20181212
  2. ARICEPT [Concomitant]
     Active Substance: DONEPEZIL HYDROCHLORIDE
  3. CATAPRES-TTS DIS [Concomitant]
  4. DULOXETINE [Concomitant]
     Active Substance: DULOXETINE
  5. HYDROCHLOROTHIAZIDE [Concomitant]
     Active Substance: HYDROCHLOROTHIAZIDE
  6. VITAMINS [Concomitant]
     Active Substance: VITAMINS
  7. OXYCODONE [Concomitant]
     Active Substance: OXYCODONE
  8. PEPCID [Concomitant]
     Active Substance: FAMOTIDINE
  9. RITALIN [Concomitant]
     Active Substance: METHYLPHENIDATE HYDROCHLORIDE
  10. SIMVASTATIN [Concomitant]
     Active Substance: SIMVASTATIN
  11. TRAZODONE [Concomitant]
     Active Substance: TRAZODONE HYDROCHLORIDE
  12. VANCOMYCIN INJ [Concomitant]
  13. VITAMIN B12 [Concomitant]
     Active Substance: CYANOCOBALAMIN
  14. VITAMIN D3 [Concomitant]
     Active Substance: CHOLECALCIFEROL
  15. WARFARIN [Concomitant]
     Active Substance: WARFARIN

REACTIONS (1)
  - Staphylococcal infection [None]

NARRATIVE: CASE EVENT DATE: 20230601
